FAERS Safety Report 8792641 (Version 1)
Quarter: 2012Q4

REPORT INFORMATION
  Report Type: 
  Country: US (occurrence: US)
  Receive Date: 20120918
  Receipt Date: 20120918
  Transmission Date: 20130627
  Serious: Yes (Hospitalization)
  Sender: FDA-Public Use
  Company Number: US-GLAXOSMITHKLINE-A0775104A

PATIENT
  Age: 51 Year
  Sex: Female
  Weight: 75 kg

DRUGS (1)
  1. AVANDIA [Suspect]
     Indication: TYPE 2 DIABETES MELLITUS
     Dosage: 4MG Unknown
     Route: 048
     Dates: start: 20020401, end: 20090224

REACTIONS (15)
  - Renal haemorrhage [Not Recovered/Not Resolved]
  - Weight increased [Unknown]
  - Amnesia [Unknown]
  - Arthralgia [Unknown]
  - Skin ulcer [Unknown]
  - Cardiac disorder [Unknown]
  - Libido decreased [Unknown]
  - Asthenia [Unknown]
  - Bone loss [Unknown]
  - Tooth loss [Unknown]
  - Pain [Unknown]
  - Epistaxis [Unknown]
  - Alopecia [Unknown]
  - Pruritus [Unknown]
  - Dyspnoea [Unknown]
